FAERS Safety Report 9072168 (Version 1)
Quarter: 2013Q1

REPORT INFORMATION
  Report Type: Spontaneous
  Country: US (occurrence: US)
  Receive Date: 20130206
  Receipt Date: 20130206
  Transmission Date: 20140127
  Serious: No
  Sender: FDA-Public Use
  Company Number: US-ALLERGAN-1216149US

PATIENT
  Age: 44 Year
  Sex: Female

DRUGS (4)
  1. RESTASIS? [Suspect]
     Indication: DRY EYE
     Dosage: 2 GTT, UNK
     Route: 047
     Dates: start: 20121030
  2. REFRESH OPTIVE ADVANCED [Concomitant]
     Indication: DRY EYE
     Dosage: UNK
     Route: 047
  3. SYSTANE ULTRA [Concomitant]
     Indication: DRY EYE
     Dosage: UNK
     Route: 047
  4. PREDNISONE EYE DROPS NOS [Concomitant]
     Indication: IRITIS
     Dosage: 2 GTT, SINGLE
     Route: 047
     Dates: start: 20121030, end: 20121030

REACTIONS (5)
  - Dysphagia [Recovering/Resolving]
  - Sensation of foreign body [Recovering/Resolving]
  - Oropharyngeal pain [Recovering/Resolving]
  - Dry throat [Recovering/Resolving]
  - Eye irritation [Recovering/Resolving]
